FAERS Safety Report 5014208-8 (Version None)
Quarter: 2006Q2

REPORT INFORMATION
  Report Type: 
  Country: None (occurrence: None)
  Receive Date: 20060530
  Receipt Date: 20060524
  Transmission Date: 20061013
  Serious: Yes (Other)
  Sender: FDA-Public Use
  Company Number: US-MERCK-0605USA04645

PATIENT
  Age: 81 Year
  Sex: Female

DRUGS (5)
  1. FOSAMAX [Suspect]
     Indication: OSTEOPOROSIS
     Route: 048
     Dates: start: 20030101, end: 20060501
  2. ANTINEOPLASTIC (UNSPECIFIED) [Concomitant]
     Route: 065
  3. NEULASTA [Concomitant]
     Route: 065
  4. VYTORIN [Concomitant]
     Route: 048
  5. GLUCOPHAGE [Concomitant]
     Route: 065

REACTIONS (4)
  - BREAST DISORDER [None]
  - EAR DISCOMFORT [None]
  - MASTECTOMY [None]
  - PAIN IN JAW [None]
